FAERS Safety Report 5705681-8 (Version None)
Quarter: 2008Q2

REPORT INFORMATION
  Report Type: 
  Country: None (occurrence: None)
  Receive Date: 20080415
  Receipt Date: 20080407
  Transmission Date: 20081010
  Serious: Yes (Other)
  Sender: FDA-Public Use
  Company Number: US-JNJFOC-20080402544

PATIENT
  Sex: Female
  Weight: 69.4 kg

DRUGS (1)
  1. RISPERDAL [Suspect]
     Indication: MENTAL DISORDER
     Route: 048

REACTIONS (3)
  - BREAST CANCER [None]
  - DIABETES MELLITUS [None]
  - HEART RATE IRREGULAR [None]
